FAERS Safety Report 24411100 (Version 1)
Quarter: 2024Q4

REPORT INFORMATION
  Report Type: Spontaneous
  Country: PL (occurrence: PL)
  Receive Date: 20241008
  Receipt Date: 20241008
  Transmission Date: 20250115
  Serious: Yes (Other)
  Sender: GILEAD
  Company Number: PL-GILEAD-2024-0689766

PATIENT
  Age: 54 Year
  Sex: Male

DRUGS (2)
  1. BIKTARVY [Suspect]
     Active Substance: BICTEGRAVIR SODIUM\EMTRICITABINE\TENOFOVIR ALAFENAMIDE FUMARATE
     Indication: HIV infection
     Dosage: UNK
     Route: 065
     Dates: start: 202004
  2. BUPROPION [Concomitant]
     Active Substance: BUPROPION

REACTIONS (3)
  - Major depression [Recovering/Resolving]
  - Weight increased [Recovering/Resolving]
  - Lipids increased [Unknown]
